FAERS Safety Report 7489198-9 (Version None)
Quarter: 2011Q2

REPORT INFORMATION
  Report Type: 
  Country: None (occurrence: None)
  Receive Date: 20110518
  Receipt Date: 20110503
  Transmission Date: 20111010
  Serious: No
  Sender: FDA-Public Use
  Company Number: US-B.I. PHARMACEUTICALS,INC./RIDGEFIELD-2011-BP-12361BP

PATIENT
  Sex: Female

DRUGS (2)
  1. COUMADIN [Concomitant]
     Route: 048
     Dates: start: 20080101, end: 20110430
  2. PRADAXA [Suspect]
     Dates: start: 20110430

REACTIONS (1)
  - HEADACHE [None]
